FAERS Safety Report 14599615 (Version 1)
Quarter: 2018Q1

REPORT INFORMATION
  Report Type: Report from Study
  Country: None (occurrence: IT)
  Receive Date: 20180305
  Receipt Date: 20180305
  Transmission Date: 20180509
  Serious: Yes (Death)
  Sender: FDA-Public Use
  Company Number: IT-ABBVIE-18S-083-2276071-00

PATIENT
  Sex: Male

DRUGS (4)
  1. VIEKIRAX [Suspect]
     Active Substance: OMBITASVIR\PARITAPREVIR\RITONAVIR
     Indication: CHRONIC HEPATITIS C
     Dosage: 2 UNITS IN THE MORNING
     Route: 048
     Dates: start: 20170913, end: 20171205
  2. EXVIERA [Suspect]
     Active Substance: DASABUVIR
     Indication: CHRONIC HEPATITIS C
     Dosage: 1 UNIT IN THE MORNING; 1 UNIT IN THE EVENING
     Route: 048
     Dates: start: 20170913, end: 20171205
  3. EXVIERA [Suspect]
     Active Substance: DASABUVIR
     Indication: HEPATIC CIRRHOSIS
  4. VIEKIRAX [Suspect]
     Active Substance: OMBITASVIR\PARITAPREVIR\RITONAVIR
     Indication: HEPATIC CIRRHOSIS

REACTIONS (1)
  - Death [Fatal]
